FAERS Safety Report 7221161-5 (Version None)
Quarter: 2011Q1

REPORT INFORMATION
  Report Type: 
  Country: None (occurrence: None)
  Receive Date: 20110112
  Receipt Date: 20110106
  Transmission Date: 20110831
  Serious: Yes (Hospitalization)
  Sender: FDA-Public Use
  Company Number: JP-PFIZER INC-2010179286

PATIENT
  Age: 84 Year
  Sex: Male

DRUGS (2)
  1. LYRICA [Suspect]
     Indication: NEURALGIA
     Dosage: 25 MG, 3X/DAY
     Route: 048
     Dates: start: 20100707, end: 20101221
  2. LYRICA [Suspect]
     Dosage: 75 MG, 2X/DAY
     Route: 048
     Dates: start: 20101222

REACTIONS (6)
  - FALL [None]
  - CONTUSION [None]
  - DIZZINESS [None]
  - BLOOD CREATININE INCREASED [None]
  - LOSS OF CONSCIOUSNESS [None]
  - ECZEMA [None]
